FAERS Safety Report 22907074 (Version 2)
Quarter: 2023Q4

REPORT INFORMATION
  Report Type: Spontaneous
  Country: US (occurrence: US)
  Receive Date: 20230905
  Receipt Date: 20231113
  Transmission Date: 20240109
  Serious: No
  Sender: FDA-Public Use
  Company Number: US-BAYER-2023A124212

PATIENT
  Age: 49 Year
  Sex: Female
  Weight: 109 kg

DRUGS (11)
  1. MIRENA [Suspect]
     Active Substance: LEVONORGESTREL
     Indication: Contraception
     Dosage: 20?G/DAY
     Route: 015
     Dates: start: 201912
  2. BENZONATATE [Concomitant]
     Active Substance: BENZONATATE
  3. CLOBETASOL [Concomitant]
     Active Substance: CLOBETASOL
  4. DIFLUCAN [Concomitant]
     Active Substance: FLUCONAZOLE
  5. FLUTICASONE PROPIONATE [Concomitant]
     Active Substance: FLUTICASONE PROPIONATE
  6. MECLIZINE HYDROCHLORIDE [Concomitant]
     Active Substance: MECLIZINE HYDROCHLORIDE
  7. NAPROXEN [Concomitant]
     Active Substance: NAPROXEN
  8. ONDANSETRON [Concomitant]
     Active Substance: ONDANSETRON
  9. PREDNISONE [Concomitant]
     Active Substance: PREDNISONE
  10. SUMATRIPTAN [Concomitant]
     Active Substance: SUMATRIPTAN
  11. TERCONAZOLE [Concomitant]
     Active Substance: TERCONAZOLE

REACTIONS (3)
  - Back pain [None]
  - Arthralgia [None]
  - Genital haemorrhage [None]
